FAERS Safety Report 7752879-3 (Version None)
Quarter: 2011Q3

REPORT INFORMATION
  Report Type: 
  Country: None (occurrence: None)
  Receive Date: 20110915
  Receipt Date: 20110914
  Transmission Date: 20111222
  Serious: Yes (Hospitalization, Other)
  Sender: FDA-Public Use
  Company Number: BE-JNJFOC-20110309740

PATIENT
  Sex: Male

DRUGS (3)
  1. IMURAN [Concomitant]
     Route: 065
  2. REMICADE [Suspect]
     Indication: CROHN'S DISEASE
     Route: 042
     Dates: start: 20080321, end: 20090213
  3. REMICADE [Suspect]
     Route: 042
     Dates: start: 20100622, end: 20100702

REACTIONS (3)
  - HYPERSENSITIVITY [None]
  - PNEUMONIA [None]
  - SEPSIS [None]
